FAERS Safety Report 8186529-1 (Version None)
Quarter: 2012Q1

REPORT INFORMATION
  Report Type: 
  Country: None (occurrence: None)
  Receive Date: 20120306
  Receipt Date: 20120227
  Transmission Date: 20120608
  Serious: Yes (Hospitalization)
  Sender: FDA-Public Use
  Company Number: US-BAYER-2011-087489

PATIENT
  Age: 33 Year
  Sex: Female
  Weight: 82 kg

DRUGS (8)
  1. ALBUTEROL [Concomitant]
     Dosage: UNK UNK, PRN
  2. YAZ [Suspect]
     Dosage: UNK
     Dates: start: 20011201, end: 20070201
  3. LEXAPRO [Concomitant]
     Dosage: 10 MG, QD
     Route: 048
  4. YASMIN [Suspect]
     Dosage: UNK
     Dates: start: 20011201, end: 20070201
  5. XANAX [Concomitant]
     Indication: ANXIETY
     Dosage: 0.5 MG, PRN
  6. ACETAMINOPHEN [Concomitant]
     Dosage: UNK UNK, PRN
     Route: 048
  7. BENADRYL [Concomitant]
     Dosage: UNK UNK, PRN
     Route: 048
  8. NYQUIL [Concomitant]
     Dosage: UNK UNK, PRN
     Route: 048

REACTIONS (7)
  - DEEP VEIN THROMBOSIS [None]
  - INJURY [None]
  - PAIN [None]
  - GENERAL PHYSICAL HEALTH DETERIORATION [None]
  - PULMONARY EMBOLISM [None]
  - ANXIETY [None]
  - EMOTIONAL DISTRESS [None]
